FAERS Safety Report 15435010 (Version 1)
Quarter: 2018Q3

REPORT INFORMATION
  Report Type: Spontaneous
  Country: US (occurrence: US)
  Receive Date: 20180927
  Receipt Date: 20180927
  Transmission Date: 20181010
  Serious: No
  Sender: FDA-Public Use
  Company Number: US-INDIVIOR LIMITED-INDV-111497-2018

PATIENT
  Sex: Female

DRUGS (3)
  1. SUBLOCADE [Suspect]
     Active Substance: BUPRENORPHINE
     Dosage: 100 UNK, QMO
     Route: 058
     Dates: start: 20180604
  2. SUBLOCADE [Suspect]
     Active Substance: BUPRENORPHINE
     Indication: DRUG DEPENDENCE
     Dosage: UNK UNK, QMO
     Route: 058
     Dates: start: 20180604
  3. SUBLOCADE [Suspect]
     Active Substance: BUPRENORPHINE
     Dosage: UNK UNK, QMO
     Route: 058
     Dates: start: 201805

REACTIONS (1)
  - Drug withdrawal syndrome [Recovered/Resolved]
